FAERS Safety Report 24237358 (Version 1)
Quarter: 2024Q3

REPORT INFORMATION
  Report Type: Spontaneous
  Country: US (occurrence: None)
  Receive Date: 20240822
  Receipt Date: 20240822
  Transmission Date: 20241016
  Serious: No
  Sender: ASTRAZENECA
  Company Number: 2024A181111

PATIENT
  Sex: Male

DRUGS (1)
  1. FARXIGA [Suspect]
     Active Substance: DAPAGLIFLOZIN PROPANEDIOL
     Indication: Renal failure
     Dosage: 10.0MG UNKNOWN
     Route: 048

REACTIONS (3)
  - Anal rash [Unknown]
  - Rash papular [Unknown]
  - Anorectal discomfort [Unknown]
